FAERS Safety Report 6680015-3 (Version None)
Quarter: 2010Q2

REPORT INFORMATION
  Report Type: 
  Country: None (occurrence: None)
  Receive Date: 20100409
  Receipt Date: 20100329
  Transmission Date: 20101027
  Serious: Yes (Hospitalization)
  Sender: FDA-Public Use
  Company Number: 009520

PATIENT
  Sex: Female

DRUGS (5)
  1. KEPPRA [Suspect]
     Indication: CONVULSION
     Dates: end: 20100308
  2. IPILIMUMAB [Suspect]
     Indication: MALIGNANT MELANOMA
     Dosage: 1 DF QD INTRAVENOUS
     Route: 042
     Dates: start: 20090305
  3. DILANTIN [Suspect]
     Indication: CONVULSION
     Dates: start: 20100221, end: 20100308
  4. GABAPENTIN [Suspect]
     Indication: CONVULSION
     Dates: start: 20100308, end: 20100309
  5. DEXAMETHASONE [Concomitant]

REACTIONS (6)
  - CONVULSION [None]
  - DISEASE RECURRENCE [None]
  - DRUG HYPERSENSITIVITY [None]
  - FALL [None]
  - LUNG DISORDER [None]
  - UNRESPONSIVE TO STIMULI [None]
